FAERS Safety Report 15566917 (Version 1)
Quarter: 2018Q4

REPORT INFORMATION
  Report Type: Spontaneous
  Country: FR (occurrence: FR)
  Receive Date: 20181030
  Receipt Date: 20181030
  Transmission Date: 20190205
  Serious: Yes (Other)
  Sender: FDA-Public Use
  Company Number: FR-OTSUKA-16691255

PATIENT
  Age: 39 Year
  Sex: Male

DRUGS (3)
  1. ABILIFY [Suspect]
     Active Substance: ARIPIPRAZOLE
     Indication: PRODUCT USED FOR UNKNOWN INDICATION
     Dosage: 20 MG, QD
     Route: 048
     Dates: start: 201204
  2. ABILIFY [Suspect]
     Active Substance: ARIPIPRAZOLE
     Dosage: 30 MG, QD
     Route: 048
     Dates: end: 20120518
  3. NOZINAN [Suspect]
     Active Substance: LEVOMEPROMAZINE
     Indication: PRODUCT USED FOR UNKNOWN INDICATION
     Dosage: 50 MG, QID
     Route: 048
     Dates: start: 20120514, end: 20120518

REACTIONS (2)
  - Lymphocytosis [Recovered/Resolved]
  - Neutropenia [Recovered/Resolved]

NARRATIVE: CASE EVENT DATE: 20120518
